FAERS Safety Report 11707604 (Version 2)
Quarter: 2015Q4

REPORT INFORMATION
  Report Type: Report from Study
  Country: US (occurrence: US)
  Receive Date: 20151106
  Receipt Date: 20151120
  Transmission Date: 20160304
  Serious: Yes (Hospitalization)
  Sender: FDA-Public Use
  Company Number: US-VERTEX PHARMACEUTICALS-2015-004965

PATIENT
  Age: 23 Year
  Sex: Female

DRUGS (19)
  1. PULMOZYME [Concomitant]
     Active Substance: DORNASE ALFA
  2. ORKAMBI [Suspect]
     Active Substance: IVACAFTOR\LUMACAFTOR
     Indication: CYSTIC FIBROSIS
     Dosage: 400MG/250 MG BD
     Route: 048
     Dates: start: 20150808
  3. NEXIUM [Concomitant]
     Active Substance: ESOMEPRAZOLE MAGNESIUM
  4. PAXIL [Concomitant]
     Active Substance: PAROXETINE HYDROCHLORIDE
  5. MELATONIN [Concomitant]
     Active Substance: MELATONIN
  6. ZITHROMAX [Concomitant]
     Active Substance: AZITHROMYCIN DIHYDRATE
  7. XOPENEX [Concomitant]
     Active Substance: LEVALBUTEROL HYDROCHLORIDE
  8. IPRATROPIUM [Concomitant]
     Active Substance: IPRATROPIUM
  9. ADVAIR HFA [Concomitant]
     Active Substance: FLUTICASONE PROPIONATE\SALMETEROL XINAFOATE
  10. RANITIDINE [Concomitant]
     Active Substance: RANITIDINE\RANITIDINE HYDROCHLORIDE
  11. KLONOPIN [Concomitant]
     Active Substance: CLONAZEPAM
  12. CREON [Concomitant]
     Active Substance: PANCRELIPASE AMYLASE\PANCRELIPASE LIPASE\PANCRELIPASE PROTEASE
  13. ZYRTEC [Concomitant]
     Active Substance: CETIRIZINE HYDROCHLORIDE
  14. NOVOLOG [Concomitant]
     Active Substance: INSULIN ASPART
  15. CHOLECALCIFEROL [Concomitant]
     Active Substance: CHOLECALCIFEROL
  16. VITAMIN A [Concomitant]
     Active Substance: VITAMIN A
  17. SINGULAIR [Concomitant]
     Active Substance: MONTELUKAST SODIUM
  18. AQUADEKS [Concomitant]
  19. FERROUS SULFATE [Concomitant]
     Active Substance: FERROUS SULFATE\FERROUS SULFATE, DRIED

REACTIONS (4)
  - Panic reaction [Unknown]
  - Infective pulmonary exacerbation of cystic fibrosis [Recovered/Resolved]
  - Muscle spasms [Unknown]
  - Acne [Unknown]

NARRATIVE: CASE EVENT DATE: 20151022
